FAERS Safety Report 20192575 (Version 4)
Quarter: 2022Q2

REPORT INFORMATION
  Report Type: Spontaneous
  Country: DE (occurrence: DE)
  Receive Date: 20211216
  Receipt Date: 20220419
  Transmission Date: 20220720
  Serious: Yes (Hospitalization, Other)
  Sender: FDA-Public Use
  Company Number: DE-NOVARTISPH-NVSC2021DE285205

PATIENT
  Sex: Female
  Weight: 65 kg

DRUGS (3)
  1. BEOVU [Suspect]
     Active Substance: BROLUCIZUMAB-DBLL
     Indication: Neovascular age-related macular degeneration
     Dosage: UNK, (LEFT EYE)
     Route: 031
     Dates: start: 20210901
  2. BEOVU [Suspect]
     Active Substance: BROLUCIZUMAB-DBLL
     Dosage: UNK, (LEFT EYE)
     Route: 031
     Dates: start: 20211110
  3. LUCENTIS [Concomitant]
     Active Substance: RANIBIZUMAB
     Indication: Product used for unknown indication
     Dosage: UNK
     Route: 065
     Dates: start: 20220228, end: 20220328

REACTIONS (8)
  - Corneal endotheliitis [Recovering/Resolving]
  - Vitritis [Recovering/Resolving]
  - Retinal vasculitis [Recovered/Resolved]
  - Iridocyclitis [Unknown]
  - Uveitis [Unknown]
  - Vitreous floaters [Unknown]
  - Vitreous haze [Unknown]
  - Keratic precipitates [Unknown]

NARRATIVE: CASE EVENT DATE: 20211207
